FAERS Safety Report 14142155 (Version 1)
Quarter: 2017Q4

REPORT INFORMATION
  Report Type: Spontaneous
  Country: AU (occurrence: AU)
  Receive Date: 20171030
  Receipt Date: 20171030
  Transmission Date: 20180321
  Serious: Yes (Life-Threatening, Other)
  Sender: FDA-Public Use
  Company Number: AU-TEVA-818368ISR

PATIENT
  Age: 41 Year
  Sex: Male
  Weight: 74 kg

DRUGS (1)
  1. ROCON [Suspect]
     Active Substance: ROCURONIUM BROMIDE
     Indication: SURGERY
     Dosage: 150 MILLIGRAM DAILY;
     Route: 042
     Dates: start: 20170922, end: 20170922

REACTIONS (4)
  - Drug ineffective [Recovered/Resolved]
  - Vocal cord dysfunction [Recovered/Resolved]
  - Swelling [Recovered/Resolved]
  - Endotracheal intubation complication [Recovered/Resolved]

NARRATIVE: CASE EVENT DATE: 20170922
